FAERS Safety Report 5534241-7 (Version None)
Quarter: 2007Q4

REPORT INFORMATION
  Report Type: 
  Country: None (occurrence: None)
  Receive Date: 20071205
  Receipt Date: 20071205
  Transmission Date: 20080405
  Serious: Yes (Hospitalization)
  Sender: FDA-Public Use
  Company Number: None

PATIENT
  Age: 33 Year
  Sex: Female
  Weight: 89.7669 kg

DRUGS (8)
  1. ZORBTIVE [Suspect]
     Indication: SHORT-BOWEL SYNDROME
     Dosage: 8.0MG QD SUBCUTANEOUS
     Route: 058
     Dates: start: 20071010, end: 20071106
  2. COREG [Concomitant]
  3. COUMADIN [Concomitant]
  4. LANTUS [Concomitant]
  5. LISINOPRIL [Concomitant]
  6. LOPERAMIDE HCL [Concomitant]
  7. OPIUM [Concomitant]
  8. PLAQUENIL [Concomitant]

REACTIONS (5)
  - BACK PAIN [None]
  - BACTERAEMIA [None]
  - HEADACHE [None]
  - INTERNATIONAL NORMALISED RATIO DECREASED [None]
  - INTERNATIONAL NORMALISED RATIO INCREASED [None]
